FAERS Safety Report 8737359 (Version 2)
Quarter: 2012Q4

REPORT INFORMATION
  Report Type: 
  Country: US (occurrence: US)
  Receive Date: 20120822
  Receipt Date: 20120904
  Transmission Date: 20130627
  Serious: Yes (Hospitalization)
  Sender: FDA-Public Use
  Company Number: US-BAYER-2012-085622

PATIENT
  Age: 51 Year
  Sex: Female
  Weight: 83 kg

DRUGS (14)
  1. TRASYLOL [Suspect]
     Indication: MITRAL VALVE REPLACEMENT
     Dosage: Loading dose of 200mL
     Dates: start: 20070413
  2. HEPARIN [Concomitant]
     Dosage: UNK
     Dates: start: 20070413
  3. LIDOCAINE [Concomitant]
     Dosage: UNK
     Dates: start: 20070413
  4. SODIUM BICARBONATE [Concomitant]
     Dosage: UNK
     Dates: start: 20070413
  5. MAGNESIUM SULFATE [Concomitant]
     Dosage: UNK
     Dates: start: 20070413
  6. CALCIUM CHLORIDE [Concomitant]
     Dosage: UNK
     Dates: start: 20070413
  7. MIDAZOLAM [Concomitant]
     Dosage: UNK
     Dates: start: 20070413
  8. SUFENTANIL [Concomitant]
     Dosage: UNK
     Dates: start: 20070413
  9. MANNITOL [Concomitant]
     Dosage: UNK
     Dates: start: 20070413, end: 20070413
  10. VANCOMYCIN [Concomitant]
     Dosage: UNK
     Dates: start: 20070413, end: 20070413
  11. SEVOFLURANE [Concomitant]
     Dosage: UNK
     Dates: start: 20070413, end: 20070413
  12. PAVULON [Concomitant]
     Dosage: UNK
     Dates: start: 20070413, end: 20070413
  13. LABETALOL [Concomitant]
     Dosage: UNK
     Dates: start: 20070413, end: 20070413
  14. PEPCID [Concomitant]
     Dosage: 20 mg, UNK
     Dates: start: 20070413, end: 20070413

REACTIONS (2)
  - Cerebrovascular accident [Recovering/Resolving]
  - Hemiparesis [None]
